FAERS Safety Report 17532167 (Version 1)
Quarter: 2020Q1

REPORT INFORMATION
  Report Type: Spontaneous
  Country: GB (occurrence: GB)
  Receive Date: 20200312
  Receipt Date: 20200312
  Transmission Date: 20200409
  Serious: Yes (Other)
  Sender: FDA-Public Use
  Company Number: GB-BRISTOL-MYERS SQUIBB COMPANY-BMS-2020-019564

PATIENT
  Age: 29 Year
  Sex: Male

DRUGS (1)
  1. WARFARIN SODIUM. [Suspect]
     Active Substance: WARFARIN SODIUM
     Indication: PRODUCT USED FOR UNKNOWN INDICATION
     Dosage: UNK
     Route: 065

REACTIONS (8)
  - Hypotension [Unknown]
  - Hypoglycaemia [Unknown]
  - International normalised ratio increased [Unknown]
  - Vomiting [Unknown]
  - Bradycardia [Unknown]
  - Headache [Unknown]
  - Hyperkalaemia [Unknown]
  - Subdural haemorrhage [Unknown]
